FAERS Safety Report 8517066-X (Version None)
Quarter: 2012Q3

REPORT INFORMATION
  Report Type: 
  Country: None (occurrence: None)
  Receive Date: 20120718
  Receipt Date: 20120712
  Transmission Date: 20120928
  Serious: Yes (Hospitalization)
  Sender: FDA-Public Use
  Company Number: US-BAYER-2012-070598

PATIENT
  Age: 37 Year
  Sex: Female
  Weight: 84.807 kg

DRUGS (9)
  1. MULTI-VITAMINS [Concomitant]
     Dosage: UNK
     Route: 048
     Dates: start: 20120116
  2. HYDROQUINONE [Concomitant]
     Dosage: 4%
     Route: 048
     Dates: start: 20120209
  3. MULTI-VITAMIN [Concomitant]
     Dosage: UNK
     Dates: start: 20120301
  4. YASMIN [Suspect]
     Indication: CONTRACEPTION
  5. PROZAC [Concomitant]
     Dosage: UNK
     Dates: start: 20120301
  6. DROSPIRENONE AND ETHINYL ESTRADIOL [Suspect]
     Indication: ORAL CONTRACEPTION
  7. VALTREX [Concomitant]
     Dosage: 500 MG, BID
     Route: 048
     Dates: start: 20120116
  8. FLUOXETINE HCL [Concomitant]
     Dosage: 20 MG, DAILY
     Route: 048
  9. NORCO [Concomitant]
     Dosage: UNK
     Dates: start: 20120301

REACTIONS (1)
  - PULMONARY EMBOLISM [None]
